FAERS Safety Report 7439407-7 (Version None)
Quarter: 2011Q2

REPORT INFORMATION
  Report Type: 
  Country: None (occurrence: None)
  Receive Date: 20110421
  Receipt Date: 20110421
  Transmission Date: 20111010
  Serious: Yes (Other)
  Sender: FDA-Public Use
  Company Number: None

PATIENT
  Age: 82 Year
  Sex: Female
  Weight: 95.2554 kg

DRUGS (1)
  1. VESICARE [Suspect]
     Indication: HYPERTONIC BLADDER
     Dosage: 10 MG ONCE DAILY BUCCAL
     Route: 002
     Dates: start: 20100110, end: 20100120

REACTIONS (2)
  - ARTHRALGIA [None]
  - MYALGIA [None]
